FAERS Safety Report 5758070-4 (Version None)
Quarter: 2008Q2

REPORT INFORMATION
  Report Type: 
  Country: None (occurrence: None)
  Receive Date: 20080602
  Receipt Date: 20080602
  Transmission Date: 20081010
  Serious: Yes (Other)
  Sender: FDA-Public Use
  Company Number: None

PATIENT
  Age: 60 Year
  Sex: Male
  Weight: 92.9874 kg

DRUGS (1)
  1. DIGOXIN [Suspect]
     Indication: CARDIAC FAILURE
     Dosage: 1 TABLET DAILY PO
     Route: 048
     Dates: start: 20061218, end: 20080504

REACTIONS (5)
  - DEPRESSION [None]
  - FATIGUE [None]
  - HALO VISION [None]
  - IMPAIRED WORK ABILITY [None]
  - PHARMACEUTICAL PRODUCT COMPLAINT [None]
